FAERS Safety Report 25902644 (Version 4)
Quarter: 2025Q4

REPORT INFORMATION
  Report Type: Spontaneous
  Country: US (occurrence: US)
  Receive Date: 20251009
  Receipt Date: 20251126
  Transmission Date: 20260117
  Serious: No
  Sender: BLUEPRINT MEDICINES
  Company Number: US-Blueprint Medicines Corporation-2025-AER-02187

PATIENT
  Age: 72 Year
  Sex: Female
  Weight: 75.3 kg

DRUGS (6)
  1. AYVAKIT [Suspect]
     Active Substance: AVAPRITINIB
     Indication: Haematopoietic neoplasm
     Route: 048
     Dates: start: 2021
  2. AYVAKIT [Suspect]
     Active Substance: AVAPRITINIB
     Route: 065
     Dates: start: 20230117
  3. CETIRIZINE [Concomitant]
     Active Substance: CETIRIZINE HYDROCHLORIDE
     Indication: Product used for unknown indication
     Route: 065
  4. EPIPEN [Concomitant]
     Active Substance: EPINEPHRINE
     Indication: Product used for unknown indication
     Route: 065
  5. PROZAC [Concomitant]
     Active Substance: FLUOXETINE HYDROCHLORIDE
     Indication: Product used for unknown indication
     Route: 065
  6. XANAX [Concomitant]
     Active Substance: ALPRAZOLAM
     Indication: Product used for unknown indication
     Route: 065

REACTIONS (11)
  - Eye haemorrhage [Recovered/Resolved]
  - Lacrimation increased [Unknown]
  - Swelling face [Unknown]
  - Stress [Unknown]
  - Affect lability [Unknown]
  - Anxiety [Recovering/Resolving]
  - Depression [Unknown]
  - Social anxiety disorder [Unknown]
  - Anger [Unknown]
  - Decreased interest [Unknown]
  - Sleep disorder [Recovering/Resolving]
